FAERS Safety Report 21771759 (Version 8)
Quarter: 2025Q2

REPORT INFORMATION
  Report Type: Spontaneous
  Country: JP (occurrence: JP)
  Receive Date: 20221223
  Receipt Date: 20250620
  Transmission Date: 20250717
  Serious: Yes (Other)
  Sender: VIIV
  Company Number: None

PATIENT
  Age: 33 Year
  Sex: Male
  Weight: 64 kg

DRUGS (6)
  1. VOCABRIA [Suspect]
     Active Substance: CABOTEGRAVIR SODIUM
     Indication: HIV infection
  2. VOCABRIA [Suspect]
     Active Substance: CABOTEGRAVIR SODIUM
     Dosage: 600 MG, Q2M
  3. RILPIVIRINE [Suspect]
     Active Substance: RILPIVIRINE
     Indication: HIV infection
  4. TRIUMEQ [Concomitant]
     Active Substance: ABACAVIR SULFATE\DOLUTEGRAVIR SODIUM\LAMIVUDINE
  5. ATOMOXETINE HYDROCHLORIDE [Concomitant]
     Active Substance: ATOMOXETINE HYDROCHLORIDE
     Indication: Attention deficit hyperactivity disorder
  6. ZOLPIDEM TARTRATE [Concomitant]
     Active Substance: ZOLPIDEM TARTRATE

REACTIONS (15)
  - Injection site pain [Recovering/Resolving]
  - Myositis [Recovered/Resolved]
  - Injection site inflammation [Recovered/Resolved]
  - Injection site mass [Recovered/Resolved]
  - Drug-induced liver injury [Recovered/Resolved]
  - Acute hepatitis B [Recovered/Resolved]
  - Hepatitis E [Recovered/Resolved]
  - Jaundice [Recovered/Resolved]
  - Physical deconditioning [Recovered/Resolved]
  - Nausea [Recovered/Resolved]
  - Hyperhidrosis [Recovered/Resolved]
  - Presyncope [Recovered/Resolved]
  - Tachycardia [Recovered/Resolved]
  - Abdominal distension [Recovered/Resolved]
  - Liver disorder [Unknown]

NARRATIVE: CASE EVENT DATE: 20221213
